FAERS Safety Report 7298935-8 (Version None)
Quarter: 2011Q1

REPORT INFORMATION
  Report Type: 
  Country: None (occurrence: None)
  Receive Date: 20110217
  Receipt Date: 20110214
  Transmission Date: 20110831
  Serious: Yes (Death, Other)
  Sender: FDA-Public Use
  Company Number: PHHY2010NZ30959

PATIENT
  Sex: Female
  Weight: 101 kg

DRUGS (6)
  1. PREDNISONE [Concomitant]
     Dosage: 05 MG, QD
     Route: 048
  2. VALPROATE SODIUM [Concomitant]
     Indication: MOOD ALTERED
     Dosage: 400 MG TDS
     Route: 048
     Dates: start: 19980101
  3. ANTICOAGULANTS [Concomitant]
  4. FERRO-GRADUMET [Concomitant]
     Dosage: 325 MG, QD
     Route: 048
  5. CLOZARIL [Suspect]
     Indication: SCHIZOPHRENIA
     Dosage: 300 MG NIGHT
     Route: 048
     Dates: start: 19980720
  6. WARFARIN SODIUM [Concomitant]
     Dosage: 400 MG
     Route: 048
     Dates: start: 19980101

REACTIONS (9)
  - LIVER SARCOIDOSIS [None]
  - MYOCARDIAL INFARCTION [None]
  - HEPATIC STEATOSIS [None]
  - SARCOIDOSIS [None]
  - CHOLELITHIASIS [None]
  - PULMONARY EMBOLISM [None]
  - PULMONARY SARCOIDOSIS [None]
  - CARDIOPULMONARY FAILURE [None]
  - HEPATIC FIBROSIS [None]
